FAERS Safety Report 8820533 (Version 1)
Quarter: 2012Q4

REPORT INFORMATION
  Report Type: 
  Country: ES (occurrence: ES)
  Receive Date: 20121002
  Receipt Date: 20121002
  Transmission Date: 20130627
  Serious: Yes (Hospitalization)
  Sender: FDA-Public Use
  Company Number: ES-TEVA-360566ISR

PATIENT
  Age: 62 Year
  Sex: Female

DRUGS (4)
  1. IPRATROPIUM [Suspect]
     Indication: INFLUENZA
     Dosage: every 6 hours
     Route: 065
  2. OSELTAMIVIR [Suspect]
     Indication: INFLUENZA
     Route: 048
  3. TERBUTALINE [Suspect]
     Indication: INFLUENZA
     Route: 065
  4. BUDESONIDE [Suspect]
     Indication: INFLUENZA
     Dosage: every 12 hours
     Route: 065

REACTIONS (9)
  - Mental disorder [Recovering/Resolving]
  - Disorientation [Recovered/Resolved]
  - Restlessness [Recovered/Resolved]
  - Psychomotor hyperactivity [Recovered/Resolved]
  - Abnormal behaviour [Recovered/Resolved]
  - Mental disorder [Recovered/Resolved]
  - Incoherent [Recovered/Resolved]
  - Delusion [Recovered/Resolved]
  - Emotional disorder [Not Recovered/Not Resolved]
